FAERS Safety Report 5716384-8 (Version None)
Quarter: 2008Q2

REPORT INFORMATION
  Report Type: 
  Country: None (occurrence: None)
  Receive Date: 20080424
  Receipt Date: 20080421
  Transmission Date: 20081010
  Serious: Yes (Death, Hospitalization, Other)
  Sender: FDA-Public Use
  Company Number: PHNU2008DE00946

PATIENT
  Sex: Female

DRUGS (9)
  1. ZOMETA [Suspect]
     Indication: METASTASES TO BONE
     Dosage: 4 MG, QMO
     Route: 042
     Dates: start: 20041101, end: 20070201
  2. FASLODEX [Concomitant]
     Dates: start: 20041101, end: 20050501
  3. EXEMESTANE [Concomitant]
     Dates: start: 20050501
  4. CYCLOPHOSPHAMIDE [Concomitant]
  5. EPIRUBICIN [Concomitant]
  6. TAXOL [Concomitant]
     Dates: start: 20050501, end: 20060401
  7. XELODA [Concomitant]
     Dates: start: 20050501, end: 20060401
  8. GEMCITABINE [Concomitant]
     Dates: start: 20050501, end: 20060401
  9. OSTAC [Concomitant]
     Indication: METASTASES TO BONE
     Dates: start: 20000601, end: 20041201

REACTIONS (4)
  - HEPATIC FAILURE [None]
  - MALIGNANT NEOPLASM PROGRESSION [None]
  - METASTASES TO LIVER [None]
  - OSTEONECROSIS [None]
